FAERS Safety Report 22292712 (Version 3)
Quarter: 2023Q4

REPORT INFORMATION
  Report Type: Report from Study
  Country: BE (occurrence: BE)
  Receive Date: 20230508
  Receipt Date: 20231214
  Transmission Date: 20240110
  Serious: Yes (Hospitalization)
  Sender: FDA-Public Use
  Company Number: BE-ABBVIE-4756876

PATIENT
  Sex: Male
  Weight: 96 kg

DRUGS (9)
  1. CARBIDOPA\LEVODOPA [Suspect]
     Active Substance: CARBIDOPA\LEVODOPA
     Indication: Parkinson^s disease
     Dosage: MD 12.0 ML, CD 3.5 ML/H ED 2.5 ML?LAST ADMINISTRATION:2023
     Route: 050
     Dates: start: 20230504
  2. CARBIDOPA\LEVODOPA [Suspect]
     Active Substance: CARBIDOPA\LEVODOPA
     Dosage: MD 12.0 ML, CD 3.8 ML/H ED 2.5 ML
     Route: 050
     Dates: start: 20221208, end: 20230203
  3. CARBIDOPA\LEVODOPA [Suspect]
     Active Substance: CARBIDOPA\LEVODOPA
     Route: 050
     Dates: start: 20141208
  4. CARBIDOPA\LEVODOPA [Suspect]
     Active Substance: CARBIDOPA\LEVODOPA
     Dosage: MD 12.0 ML, CD 3.8 ML/H ED 2.5 ML
     Route: 050
     Dates: start: 20230203, end: 20230504
  5. CARBIDOPA\LEVODOPA [Suspect]
     Active Substance: CARBIDOPA\LEVODOPA
     Dosage: MD: 15.0 ML, CD: 3.2 ML/H, ED: 2.5 ML REMAINS AT 16 HOURS
     Route: 050
     Dates: start: 20231208
  6. PRAMIPEXOLE [Concomitant]
     Active Substance: PRAMIPEXOLE
     Indication: Product used for unknown indication
     Dosage: FORM STRENGTH: 3.15 MG
  7. STALEVO [Concomitant]
     Active Substance: CARBIDOPA\ENTACAPONE\LEVODOPA
     Indication: Product used for unknown indication
     Dosage: FORM STRENGTH: 150 MG
  8. STALEVO [Concomitant]
     Active Substance: CARBIDOPA\ENTACAPONE\LEVODOPA
     Indication: Product used for unknown indication
     Dosage: TIME INTERVAL: 0.33333333 DAYS: FORM STRENGTH: 100 MG
  9. ELDEPRYL [Concomitant]
     Active Substance: SELEGILINE HYDROCHLORIDE
     Indication: Product used for unknown indication
     Dosage: FORM STRENGTH: 10 MG

REACTIONS (4)
  - Hernia [Unknown]
  - Dyskinesia [Not Recovered/Not Resolved]
  - On and off phenomenon [Unknown]
  - Fall [Not Recovered/Not Resolved]
